FAERS Safety Report 11717961 (Version 1)
Quarter: 2015Q4

REPORT INFORMATION
  Report Type: Spontaneous
  Country: US (occurrence: None)
  Receive Date: 20151109
  Receipt Date: 20151109
  Transmission Date: 20160304
  Serious: Yes (Other)
  Sender: FDA-Public Use
  Company Number: None

PATIENT
  Age: 64 Year
  Sex: Female
  Weight: 88 kg

DRUGS (10)
  1. FENOFIBRATE. [Concomitant]
     Active Substance: FENOFIBRATE
  2. JUBLIA [Suspect]
     Active Substance: EFINACONAZOLE
     Indication: ONYCHOMYCOSIS
     Dosage: SQUEEZE TO MOISTEN TOE NAILS ONCE DAILY TOPICAL TO TOENAILS
     Route: 061
     Dates: start: 20150715, end: 20150831
  3. ASA [Concomitant]
     Active Substance: ASPIRIN
  4. HCTZ [Concomitant]
     Active Substance: HYDROCHLOROTHIAZIDE
  5. CENTRUM SILVER [Concomitant]
     Active Substance: MINERALS\VITAMINS
  6. PERSERV VISION VITAMINS [Concomitant]
  7. VITAMIN D3 [Concomitant]
     Active Substance: CHOLECALCIFEROL
  8. LIPITOR [Concomitant]
     Active Substance: ATORVASTATIN CALCIUM
  9. CQ10 [Concomitant]
     Active Substance: UBIDECARENONE
  10. CALTRATE [Concomitant]
     Active Substance: CALCIUM CARBONATE

REACTIONS (7)
  - Pruritus [None]
  - Joint swelling [None]
  - Blister [None]
  - Feeling hot [None]
  - Madarosis [None]
  - Erythema [None]
  - Skin exfoliation [None]

NARRATIVE: CASE EVENT DATE: 20150817
